FAERS Safety Report 23911383 (Version 2)
Quarter: 2024Q4

REPORT INFORMATION
  Report Type: Spontaneous
  Country: ES (occurrence: ES)
  Receive Date: 20240528
  Receipt Date: 20241203
  Transmission Date: 20250115
  Serious: Yes (Hospitalization, Other)
  Sender: SANDOZ
  Company Number: ES-AMGEN-ESPSP2022044414

PATIENT

DRUGS (2)
  1. ADALIMUMAB [Suspect]
     Active Substance: ADALIMUMAB
     Indication: Colitis ulcerative
     Dosage: UNK
     Route: 065
  2. ADALIMUMAB [Suspect]
     Active Substance: ADALIMUMAB
     Indication: Crohn^s disease

REACTIONS (13)
  - Bladder neoplasm [Unknown]
  - Gastrointestinal lymphoma [Unknown]
  - Colorectal cancer [Unknown]
  - Neoplasm prostate [Unknown]
  - Non-Hodgkin^s lymphoma [Unknown]
  - Neoplasm skin [Unknown]
  - Lung neoplasm [Unknown]
  - Acute leukaemia [Unknown]
  - Adverse event [Unknown]
  - Infection [Unknown]
  - Therapy non-responder [Unknown]
  - Drug ineffective [Unknown]
  - Infusion related reaction [Unknown]
